FAERS Safety Report 10085120 (Version 1)
Quarter: 2014Q2

REPORT INFORMATION
  Report Type: Spontaneous
  Country: US (occurrence: US)
  Receive Date: 20140417
  Receipt Date: 20140417
  Transmission Date: 20141212
  Serious: No
  Sender: FDA-Public Use
  Company Number: US-PFIZER INC-2014107934

PATIENT
  Sex: Female

DRUGS (2)
  1. XANAX [Suspect]
     Indication: SLEEP DISORDER
     Dosage: 0.25 MG, UNK
  2. ALAVERT D-12 HOUR ALLERGY + SINUS [Suspect]
     Dosage: UNK

REACTIONS (2)
  - Nervousness [Unknown]
  - Blood pressure increased [Unknown]
